FAERS Safety Report 9300325 (Version 3)
Quarter: 2013Q2

REPORT INFORMATION
  Report Type: Spontaneous
  Country: US (occurrence: US)
  Receive Date: 20130521
  Receipt Date: 20130530
  Transmission Date: 20140414
  Serious: Yes (Hospitalization, Other)
  Sender: FDA-Public Use
  Company Number: US-BAYER-2013-060155

PATIENT
  Age: 76 Year
  Sex: Female

DRUGS (1)
  1. STIVARGA [Suspect]
     Indication: COLORECTAL CANCER METASTATIC
     Dosage: 160 MG DAILY
     Route: 048
     Dates: start: 20130425, end: 20130508

REACTIONS (8)
  - Pyrexia [None]
  - Chills [None]
  - Rash generalised [None]
  - Decreased immune responsiveness [None]
  - Pain in extremity [None]
  - Erythema [None]
  - Fatigue [None]
  - Infection [None]
